FAERS Safety Report 23396453 (Version 2)
Quarter: 2024Q1

REPORT INFORMATION
  Report Type: Spontaneous
  Country: US (occurrence: US)
  Receive Date: 20240112
  Receipt Date: 20240229
  Transmission Date: 20240410
  Serious: Yes (Death, Hospitalization)
  Sender: FDA-Public Use
  Company Number: US-BAYER-2024A002305

PATIENT
  Age: 12 Year
  Sex: Female

DRUGS (1)
  1. BAYER ASPIRIN [Suspect]
     Active Substance: ASPIRIN
     Route: 048

REACTIONS (6)
  - Toxicity to various agents [Fatal]
  - Intentional overdose [Fatal]
  - Nausea [None]
  - Vomiting [None]
  - Kussmaul respiration [None]
  - Abdominal pain [None]
